FAERS Safety Report 8491169-0 (Version None)
Quarter: 2012Q2

REPORT INFORMATION
  Report Type: 
  Country: None (occurrence: None)
  Receive Date: 20120402
  Receipt Date: 20110222
  Transmission Date: 20120825
  Serious: Yes (Hospitalization)
  Sender: FDA-Public Use
  Company Number: A-US2011-45425

PATIENT
  Age: 68 Year
  Sex: Female

DRUGS (7)
  1. TRACLEER [Suspect]
     Indication: PULMONARY ARTERIAL HYPERTENSION
     Dosage: , ORAL
     Route: 048
     Dates: start: 20090813
  2. TADALAFIL [Concomitant]
  3. COUMADIN [Concomitant]
  4. ADVAIR HFA [Concomitant]
  5. VELETRI [Suspect]
     Indication: PULMONARY ARTERIAL HYPERTENSION
     Dosage: 26UG/KG, INTRAVENOUS
     Route: 042
     Dates: start: 20101130
  6. DIURETICS [Concomitant]
  7. OXYGEN (OXYGEN) [Concomitant]

REACTIONS (5)
  - RIGHT VENTRICULAR FAILURE [None]
  - FLUID OVERLOAD [None]
  - OEDEMA PERIPHERAL [None]
  - NASOPHARYNGITIS [None]
  - DYSPNOEA [None]
